FAERS Safety Report 26074330 (Version 1)
Quarter: 2025Q4

REPORT INFORMATION
  Report Type: Spontaneous
  Country: CN (occurrence: CN)
  Receive Date: 20251121
  Receipt Date: 20251121
  Transmission Date: 20260118
  Serious: Yes (Other)
  Sender: RANBAXY
  Company Number: CN-SUN PHARMACEUTICAL INDUSTRIES INC-2025R1-537337

PATIENT
  Age: 19 Year
  Sex: Male
  Weight: 60 kg

DRUGS (3)
  1. OXCARBAZEPINE [Interacting]
     Active Substance: OXCARBAZEPINE
     Indication: Seizure
     Dosage: 600 MILLIGRAM
     Route: 065
     Dates: start: 20180605
  2. PERAMPANEL [Interacting]
     Active Substance: PERAMPANEL
     Indication: Seizure
     Dosage: 2 MILLIGRAM, QN
     Route: 065
     Dates: start: 20240404
  3. VALPROATE SODIUM [Concomitant]
     Active Substance: VALPROATE SODIUM
     Indication: Epilepsy
     Dosage: 500 MILLIGRAM, BID
     Route: 065
     Dates: start: 2016

REACTIONS (2)
  - Condition aggravated [Unknown]
  - Drug interaction [Unknown]
